FAERS Safety Report 5027819-0 (Version None)
Quarter: 2006Q2

REPORT INFORMATION
  Report Type: 
  Country: None (occurrence: None)
  Receive Date: 20060612
  Receipt Date: 20060601
  Transmission Date: 20061013
  Serious: No
  Sender: FDA-Public Use
  Company Number: 2006-143523-NL

PATIENT
  Sex: Male

DRUGS (4)
  1. MIRTAZAPINE [Suspect]
     Dosage: 15 MG/DF
     Dates: start: 20060608
  2. DIAZEPAM [Concomitant]
  3. OXYCOCET [Concomitant]
  4. CODEINE [Concomitant]

REACTIONS (3)
  - COLITIS [None]
  - DIARRHOEA [None]
  - WEIGHT DECREASED [None]
